FAERS Safety Report 19792838 (Version 2)
Quarter: 2022Q2

REPORT INFORMATION
  Report Type: Spontaneous
  Country: GB (occurrence: GB)
  Receive Date: 20210906
  Receipt Date: 20220509
  Transmission Date: 20220720
  Serious: Yes (Other)
  Sender: FDA-Public Use
  Company Number: None

PATIENT
  Age: 59 Year

DRUGS (3)
  1. CIPROFLOXACIN [Suspect]
     Active Substance: CIPROFLOXACIN
     Indication: Ill-defined disorder
     Dosage: 500 MG, 2X/DAY (FOR SIX WEEKS)
     Route: 048
     Dates: start: 20210730, end: 20210817
  2. HYDROCORTISONE [Concomitant]
     Active Substance: HYDROCORTISONE
     Indication: Ill-defined disorder
     Dosage: UNK
  3. LEVOTHYROXINE [Concomitant]
     Active Substance: LEVOTHYROXINE
     Indication: Ill-defined disorder
     Dosage: UNK

REACTIONS (8)
  - Vertigo [Unknown]
  - Pain in extremity [Not Recovered/Not Resolved]
  - Tinnitus [Unknown]
  - Blood pressure increased [Unknown]
  - Flatulence [Unknown]
  - Malaise [Unknown]
  - Contraindicated product administered [Unknown]
  - Product prescribing error [Unknown]

NARRATIVE: CASE EVENT DATE: 20210816
